FAERS Safety Report 5504150-8 (Version None)
Quarter: 2007Q4

REPORT INFORMATION
  Report Type: 
  Country: None (occurrence: None)
  Receive Date: 20071030
  Receipt Date: 20071022
  Transmission Date: 20080405
  Serious: Yes (Hospitalization)
  Sender: FDA-Public Use
  Company Number: TPA2007A02162

PATIENT
  Age: 62 Year
  Sex: Male
  Weight: 102.0593 kg

DRUGS (3)
  1. ACTOS [Suspect]
     Indication: TYPE 2 DIABETES MELLITUS
     Dosage: 30 MG, 1 IN 1 D, PER ORAL
     Route: 048
     Dates: start: 20070101
  2. LIPITOR [Concomitant]
  3. DIURETIC (DIURETICS) [Concomitant]

REACTIONS (4)
  - ARTHRALGIA [None]
  - CHOLECYSTECTOMY [None]
  - CORONARY ARTERY OCCLUSION [None]
  - JOINT SWELLING [None]
